FAERS Safety Report 8294723-4 (Version None)
Quarter: 2012Q2

REPORT INFORMATION
  Report Type: 
  Country: None (occurrence: None)
  Receive Date: 20120418
  Receipt Date: 20120417
  Transmission Date: 20120825
  Serious: Yes (Other)
  Sender: FDA-Public Use
  Company Number: SG-BAYER-2012-037255

PATIENT
  Age: 65 Year
  Sex: Female

DRUGS (3)
  1. AMOXICILLIN [Suspect]
  2. METRONIDAZOLE [Suspect]
  3. CIPROFLOXACIN HCL [Suspect]

REACTIONS (1)
  - EYE SWELLING [None]
